FAERS Safety Report 23096431 (Version 2)
Quarter: 2024Q4

REPORT INFORMATION
  Report Type: Spontaneous
  Country: CZ (occurrence: CZ)
  Receive Date: 20231023
  Receipt Date: 20241224
  Transmission Date: 20250114
  Serious: Yes (Life-Threatening, Hospitalization, Other)
  Sender: CHATTEM
  Company Number: None

PATIENT
  Age: 31 Year
  Sex: Male

DRUGS (6)
  1. IBUPROFEN [Suspect]
     Active Substance: IBUPROFEN
     Indication: Intentional overdose
     Dosage: 40 TABLETS IN TOTAL
     Dates: start: 20210619
  2. ACETAMINOPHEN [Suspect]
     Active Substance: ACETAMINOPHEN
     Indication: Intentional overdose
     Dosage: 40 TABLETS IN TOTAL
     Dates: start: 20210619
  3. NOVALGIN (METAMIZOLE SODIUM) [Suspect]
     Active Substance: METAMIZOLE SODIUM
     Indication: Intentional overdose
     Dates: start: 20210619
  4. DICLOFENAC [Suspect]
     Active Substance: DICLOFENAC
     Indication: Intentional overdose
     Dates: start: 20210619
  5. COLCHICUM [Suspect]
     Active Substance: COLCHICINE
     Indication: Intentional overdose
     Dates: start: 20210619
  6. ACETAMINOPHEN\CAFFEINE\GUAIFENESIN [Suspect]
     Active Substance: ACETAMINOPHEN\CAFFEINE\GUAIFENESIN
     Indication: Intentional overdose
     Dates: start: 20210619

REACTIONS (2)
  - Suicide attempt [Unknown]
  - Intentional overdose [Unknown]

NARRATIVE: CASE EVENT DATE: 20210619
